FAERS Safety Report 9194310 (Version 2)
Quarter: 2013Q1

REPORT INFORMATION
  Report Type: Spontaneous
  Country: US (occurrence: US)
  Receive Date: 20130327
  Receipt Date: 20130328
  Transmission Date: 20140127
  Serious: Yes (Hospitalization)
  Sender: FDA-Public Use
  Company Number: US-GILEAD-2013-0069653

PATIENT
  Sex: Female

DRUGS (1)
  1. LETAIRIS [Suspect]
     Indication: PULMONARY HYPERTENSION
     Dosage: 5 MG, QD
     Dates: start: 20120613

REACTIONS (7)
  - Gallbladder operation [Unknown]
  - Back pain [Unknown]
  - Back injury [Unknown]
  - Skin papilloma [Unknown]
  - Rectal haemorrhage [Recovered/Resolved]
  - Constipation [Unknown]
  - Dizziness [Unknown]
